FAERS Safety Report 4617687-0 (Version None)
Quarter: 2005Q1

REPORT INFORMATION
  Report Type: 
  Country: None (occurrence: None)
  Receive Date: 20050322
  Receipt Date: 20050307
  Transmission Date: 20050727
  Serious: Yes (Hospitalization)
  Sender: FDA-Public Use
  Company Number: WAES 0503ITA00013

PATIENT
  Age: 37 Year
  Sex: Male

DRUGS (3)
  1. CRIXIVAN [Suspect]
     Indication: HIV INFECTION
     Dates: start: 19970101
  2. STAVUDINE [Suspect]
     Indication: HIV INFECTION
     Dates: start: 19970101
  3. LAMIVUDINE [Suspect]
     Indication: HIV INFECTION
     Dates: start: 19970101

REACTIONS (4)
  - ARTERIAL FIBROSIS [None]
  - BLOOD TRIGLYCERIDES INCREASED [None]
  - CAROTID ARTERY STENOSIS [None]
  - SCAR [None]
